FAERS Safety Report 21014470 (Version 1)
Quarter: 2022Q2

REPORT INFORMATION
  Report Type: Report from Study
  Country: US (occurrence: US)
  Receive Date: 20220627
  Receipt Date: 20220627
  Transmission Date: 20220721
  Serious: Yes (Other)
  Sender: FDA-Public Use
  Company Number: US-BRISTOL-MYERS SQUIBB COMPANY-2022-061002

PATIENT
  Sex: Female

DRUGS (1)
  1. ELIQUIS [Suspect]
     Active Substance: APIXABAN
     Indication: Cerebrovascular accident prophylaxis
     Route: 065
     Dates: start: 2021

REACTIONS (4)
  - COVID-19 [Unknown]
  - Breast cancer [Unknown]
  - Bronchitis [Unknown]
  - Deafness neurosensory [Unknown]

NARRATIVE: CASE EVENT DATE: 20210901
